FAERS Safety Report 5705978-1 (Version None)
Quarter: 2008Q2

REPORT INFORMATION
  Report Type: 
  Country: None (occurrence: None)
  Receive Date: 20080415
  Receipt Date: 20080409
  Transmission Date: 20081010
  Serious: Yes (Other)
  Sender: FDA-Public Use
  Company Number: AU-ALLERGAN-0803357US

PATIENT
  Sex: Male

DRUGS (6)
  1. BOTOX [Suspect]
     Indication: DRUG USE FOR UNKNOWN INDICATION
     Dosage: 200 UNITS, SINGLE
     Route: 043
     Dates: start: 20080320, end: 20080320
  2. MIDAZOLAM HCL [Concomitant]
     Dosage: UNK, UNK
     Route: 042
     Dates: start: 20080320
  3. FENTANYL [Concomitant]
     Dosage: UNK, UNK
     Route: 042
     Dates: start: 20080320
  4. PROPOFOL [Concomitant]
     Dosage: UNK, UNK
     Route: 042
     Dates: start: 20080320
  5. CEPHALOTHIN [Concomitant]
     Dosage: UNK, UNK
     Route: 042
     Dates: start: 20080320
  6. VANCOMYCIN [Concomitant]
     Dosage: UNK, UNK
     Route: 042
     Dates: start: 20080320

REACTIONS (3)
  - ANGIOEDEMA [None]
  - HYPOTENSION [None]
  - URTICARIA [None]
